FAERS Safety Report 18354916 (Version 2)
Quarter: 2020Q4

REPORT INFORMATION
  Report Type: Other
  Country: US (occurrence: US)
  Receive Date: 20201007
  Receipt Date: 20201023
  Transmission Date: 20210114
  Serious: No
  Sender: FDA-Public Use
  Company Number: US-ROCHE-2688194

PATIENT
  Sex: Female
  Weight: 16.9 kg

DRUGS (10)
  1. NUTROPIN [Suspect]
     Active Substance: SOMATROPIN
     Indication: END STAGE RENAL DISEASE
  2. NUTROPIN [Suspect]
     Active Substance: SOMATROPIN
  3. SODIUM CHLORIDE. [Concomitant]
     Active Substance: SODIUM CHLORIDE
     Dosage: 2.5 MEQ/ML
  4. NEURONTIN [Concomitant]
     Active Substance: GABAPENTIN
     Route: 048
  5. GARAMYCIN [Concomitant]
     Active Substance: GENTAMICIN SULFATE
     Dosage: DISPENSE 15 G
     Route: 061
  6. NUTROPIN [Suspect]
     Active Substance: SOMATROPIN
     Indication: CHRONIC KIDNEY DISEASE
     Dosage: 12 MG/ML (36 UNITS/ML)
     Route: 058
     Dates: start: 20200928
  7. REGLAN [Concomitant]
     Active Substance: METOCLOPRAMIDE HYDROCHLORIDE
     Route: 048
  8. RENVELA [Concomitant]
     Active Substance: SEVELAMER CARBONATE
     Route: 048
  9. NUTROPIN [Suspect]
     Active Substance: SOMATROPIN
  10. NORVASC [Concomitant]
     Active Substance: AMLODIPINE BESYLATE
     Dosage: DISPENSE 120 ML
     Route: 048

REACTIONS (1)
  - No adverse event [Unknown]
